FAERS Safety Report 25516908 (Version 1)
Quarter: 2025Q3

REPORT INFORMATION
  Report Type: Other
  Country: AU (occurrence: AU)
  Receive Date: 20250704
  Receipt Date: 20250704
  Transmission Date: 20251021
  Serious: Yes (Hospitalization, Other)
  Sender: ESJAY PHARMA
  Company Number: AU-ESJAY PHARMA-000794

PATIENT
  Age: 33 Year
  Sex: Female

DRUGS (9)
  1. METRONIDAZOLE [Suspect]
     Active Substance: METRONIDAZOLE
     Indication: Appendicitis perforated
     Dates: start: 201705
  2. PREDNISOLONE [Concomitant]
     Active Substance: PREDNISOLONE
     Indication: Lupus nephritis
  3. AZATHIOPRINE [Concomitant]
     Active Substance: AZATHIOPRINE
     Indication: Lupus nephritis
  4. HYDROXYCHLOROQUINE [Concomitant]
     Active Substance: HYDROXYCHLOROQUINE
     Indication: Lupus nephritis
  5. AMOXICILLIN [Concomitant]
     Active Substance: AMOXICILLIN
     Indication: Appendicitis perforated
  6. GENTAMICIN [Concomitant]
     Active Substance: GENTAMICIN
     Indication: Appendicitis perforated
  7. CEPHALEXIN [Concomitant]
     Active Substance: CEPHALEXIN
     Indication: Appendicitis perforated
  8. CIPROFLOXACIN [Concomitant]
     Active Substance: CIPROFLOXACIN
     Indication: Appendicitis perforated
  9. PREDNISOLONE [Concomitant]
     Active Substance: PREDNISOLONE
     Indication: Lupus nephritis

REACTIONS (1)
  - Renal tubular necrosis [Recovering/Resolving]
